FAERS Safety Report 11248880 (Version 1)
Quarter: 2015Q3

REPORT INFORMATION
  Report Type: Spontaneous
  Country: US (occurrence: US)
  Receive Date: 20150708
  Receipt Date: 20150708
  Transmission Date: 20151125
  Serious: No
  Sender: FDA-Public Use
  Company Number: US-ELI_LILLY_AND_COMPANY-US201102005601

PATIENT
  Age: 62 Year
  Sex: Male

DRUGS (5)
  1. PLAVIX [Concomitant]
     Active Substance: CLOPIDOGREL BISULFATE
  2. LISINOPRIL. [Concomitant]
     Active Substance: LISINOPRIL
  3. PROZAC [Suspect]
     Active Substance: FLUOXETINE HYDROCHLORIDE
     Indication: ANXIETY
     Dosage: 20 MG, DAILY (1/D)
     Dates: start: 201010, end: 201102
  4. GLUCOPHAGE [Concomitant]
     Active Substance: METFORMIN HYDROCHLORIDE
  5. XANAX [Concomitant]
     Active Substance: ALPRAZOLAM
     Dosage: 1 MG, 2/D

REACTIONS (8)
  - Loss of libido [Unknown]
  - Incorrect drug administration duration [Unknown]
  - Ejaculation disorder [Unknown]
  - Pruritus [Unknown]
  - Flushing [Unknown]
  - Withdrawal syndrome [Unknown]
  - Hypoaesthesia [Unknown]
  - Erectile dysfunction [Unknown]

NARRATIVE: CASE EVENT DATE: 201102
